FAERS Safety Report 10052307 (Version 1)
Quarter: 2014Q2

REPORT INFORMATION
  Report Type: Spontaneous
  Country: ES (occurrence: ES)
  Receive Date: 20140402
  Receipt Date: 20140402
  Transmission Date: 20141212
  Serious: No
  Sender: FDA-Public Use
  Company Number: ES-JNJFOC-20140317486

PATIENT
  Age: 34 Year
  Sex: Female

DRUGS (2)
  1. TOPAMAX [Suspect]
     Indication: EPILEPSY
     Route: 048
     Dates: start: 2004
  2. KEPPRA [Suspect]
     Indication: EPILEPSY
     Route: 042
     Dates: start: 20140101, end: 20140115

REACTIONS (1)
  - Exposure during pregnancy [Unknown]
